FAERS Safety Report 20486013 (Version 2)
Quarter: 2024Q1

REPORT INFORMATION
  Report Type: Report from Study
  Country: US (occurrence: US)
  Receive Date: 20220217
  Receipt Date: 20240222
  Transmission Date: 20240409
  Serious: No
  Sender: FDA-Public Use
  Company Number: US-KYOWAKIRIN-2022BKK001722

PATIENT

DRUGS (5)
  1. CRYSVITA [Suspect]
     Active Substance: BUROSUMAB-TWZA
     Indication: Hereditary hypophosphataemic rickets
     Dosage: 40 MG, 1X/2 WEEKS
     Route: 058
     Dates: start: 20210316
  2. CRYSVITA [Suspect]
     Active Substance: BUROSUMAB-TWZA
     Dosage: 40 MG, 1X/2 WEEKS (2 VIALS UNDER THE SKIN)
     Route: 058
  3. LEVOCARNITINE [Concomitant]
     Active Substance: LEVOCARNITINE
     Indication: Product used for unknown indication
     Dosage: 100 MG/ML (SOLUTION)
     Route: 065
  4. VITAMIN D3 [Concomitant]
     Active Substance: CHOLECALCIFEROL
     Indication: Product used for unknown indication
     Dosage: 50 UG
     Route: 065
  5. CHILDRENS TYLENOL [Concomitant]
     Active Substance: ACETAMINOPHEN
     Indication: Product used for unknown indication
     Dosage: UNK
     Route: 065

REACTIONS (10)
  - Bone deformity [Unknown]
  - Knee deformity [Unknown]
  - Gait disturbance [Unknown]
  - Short stature [Unknown]
  - Abnormal weight gain [Unknown]
  - Injection site mass [Unknown]
  - Arthralgia [Unknown]
  - Pain in extremity [Unknown]
  - Headache [Unknown]
  - Arthralgia [Unknown]
